FAERS Safety Report 26019447 (Version 1)
Quarter: 2025Q4

REPORT INFORMATION
  Report Type: Spontaneous
  Country: US (occurrence: None)
  Receive Date: 20251107
  Receipt Date: 20251107
  Transmission Date: 20260118
  Serious: No
  Sender: FDA-CTU
  Company Number: None

PATIENT
  Age: 33 Year
  Sex: Female
  Weight: 87.75 kg

DRUGS (18)
  1. XYWAV [Suspect]
     Active Substance: CALCIUM OXYBATE\MAGNESIUM OXYBATE\POTASSIUM OXYBATE\SODIUM OXYBATE
     Indication: Narcolepsy
     Dosage: OTHER QUANTITY : 3 GRAM;?FREQUENCY : TWICE A DAY;?
     Route: 048
     Dates: start: 20251003
  2. XYWAV [Concomitant]
     Active Substance: CALCIUM OXYBATE\MAGNESIUM OXYBATE\POTASSIUM OXYBATE\SODIUM OXYBATE
  3. NALTREXONE [Concomitant]
     Active Substance: NALTREXONE
  4. NURTEC ODT [Concomitant]
     Active Substance: RIMEGEPANT SULFATE
  5. MONTELUKAST [Concomitant]
     Active Substance: MONTELUKAST
  6. METOPROLOL [Concomitant]
     Active Substance: METOPROLOL
  7. GUANFACINE [Concomitant]
     Active Substance: GUANFACINE
  8. QULIPTA [Concomitant]
     Active Substance: ATOGEPANT
  9. XYZAL [Concomitant]
     Active Substance: LEVOCETIRIZINE DIHYDROCHLORIDE
  10. CELEXA [Concomitant]
     Active Substance: CITALOPRAM HYDROBROMIDE
  11. BUDESONIDE [Concomitant]
     Active Substance: BUDESONIDE
  12. INOSITOL [Concomitant]
     Active Substance: INOSITOL
  13. SPEARMINT [Concomitant]
     Active Substance: SPEARMINT
  14. COENZYME Q10 [Concomitant]
     Active Substance: DIETARY SUPPLEMENT\UBIDECARENONE
  15. MAGNESIUM [Concomitant]
     Active Substance: MAGNESIUM
  16. B12 [Concomitant]
  17. VITAMIN D3 [Concomitant]
     Active Substance: CHOLECALCIFEROL
  18. Prenatal Multivitamin [Concomitant]

REACTIONS (4)
  - Dry eye [None]
  - Eye pain [None]
  - Visual impairment [None]
  - Somnolence [None]

NARRATIVE: CASE EVENT DATE: 20251107
